FAERS Safety Report 6097248-X (Version None)
Quarter: 2009Q1

REPORT INFORMATION
  Report Type: 
  Country: None (occurrence: None)
  Receive Date: 20090227
  Receipt Date: 20090220
  Transmission Date: 20090719
  Serious: Yes (Hospitalization)
  Sender: FDA-Public Use
  Company Number: B0561581A

PATIENT
  Age: 76 Year
  Sex: Male

DRUGS (6)
  1. ABACAVIR SULFATE/LAMIVUDINE [Suspect]
     Indication: HIV INFECTION
     Route: 048
     Dates: start: 20081029, end: 20081114
  2. STOCRIN [Suspect]
     Indication: HIV INFECTION
     Dosage: 600MG PER DAY
     Route: 048
     Dates: start: 20081029, end: 20081114
  3. MAREVAN [Concomitant]
     Indication: ATRIAL FIBRILLATION
     Route: 048
  4. DIGOXIN [Concomitant]
     Route: 048
  5. DIOVAN [Concomitant]
     Route: 048
  6. TENOX [Concomitant]
     Route: 048

REACTIONS (1)
  - EPISTAXIS [None]
